FAERS Safety Report 4709276-4 (Version None)
Quarter: 2005Q3

REPORT INFORMATION
  Report Type: 
  Country: None (occurrence: None)
  Receive Date: 20050708
  Receipt Date: 20050628
  Transmission Date: 20060218
  Serious: Yes (Other)
  Sender: FDA-Public Use
  Company Number: 2005PK01132

PATIENT
  Age: 82 Year
  Sex: Female
  Weight: 78 kg

DRUGS (7)
  1. ARIMIDEX [Suspect]
     Indication: BREAST CANCER
     Dates: start: 20050201
  2. NORICAVEN [Concomitant]
     Indication: VARICOSE VEIN
     Route: 048
     Dates: start: 19930101, end: 20050530
  3. ASS 100 [Concomitant]
     Indication: VARICOSE VEIN
     Route: 048
     Dates: start: 19930101
  4. PROTHYRID [Concomitant]
     Indication: THYROID OPERATION
  5. BISOMERCK [Concomitant]
  6. NITRENSAL [Concomitant]
  7. ISDN [Concomitant]

REACTIONS (2)
  - THROMBOPHLEBITIS [None]
  - VENOUS THROMBOSIS [None]
